FAERS Safety Report 17830073 (Version 5)
Quarter: 2022Q2

REPORT INFORMATION
  Report Type: Spontaneous
  Country: FR (occurrence: FR)
  Receive Date: 20200527
  Receipt Date: 20220407
  Transmission Date: 20220721
  Serious: Yes (Hospitalization, Other)
  Sender: FDA-Public Use
  Company Number: FR-JAZZ-2020-FR-005547

PATIENT

DRUGS (79)
  1. DEFITELIO [Suspect]
     Active Substance: DEFIBROTIDE SODIUM
     Indication: Prophylaxis
     Dosage: 6.25 MILLIGRAM/KILOGRAM (380 MILLIGRAM PER DOSE), QID
     Route: 042
     Dates: start: 20141111, end: 20141201
  2. DEFITELIO [Suspect]
     Active Substance: DEFIBROTIDE SODIUM
     Indication: Venoocclusive liver disease
  3. ICLUSIG [Suspect]
     Active Substance: PONATINIB
     Indication: Product used for unknown indication
     Dosage: 45 MILLIGRAM, QD
     Route: 065
  4. ICLUSIG [Suspect]
     Active Substance: PONATINIB
     Indication: Acute myeloid leukaemia
  5. AMSACRINE [Suspect]
     Active Substance: AMSACRINE
     Indication: Acute myeloid leukaemia
     Dosage: 100 MILLIGRAM/SQ. METER, QD
     Route: 065
  6. CYTARABINE [Suspect]
     Active Substance: CYTARABINE
     Indication: Acute myeloid leukaemia
     Dosage: 200 MILLIGRAM/SQ. METER
  7. CYTARABINE [Suspect]
     Active Substance: CYTARABINE
     Indication: Drug therapy
     Dosage: 200 MILLIGRAM/SQ. METER, QD
  8. CYTARABINE [Suspect]
     Active Substance: CYTARABINE
     Dosage: 3 GRAM PER SQUARE METRE, BID
     Route: 065
  9. CYTARABINE [Suspect]
     Active Substance: CYTARABINE
     Dosage: UNKNOWN DOSE
     Route: 037
  10. CYTARABINE [Suspect]
     Active Substance: CYTARABINE
     Dosage: 2000 MILLIGRAM/SQ. METER
  11. CYTARABINE [Suspect]
     Active Substance: CYTARABINE
     Dosage: 200 MILLIGRAM/SQ. METER, QD
  12. CYTARABINE [Suspect]
     Active Substance: CYTARABINE
     Dosage: UNKNOWN DOSE
     Route: 037
  13. CYTARABINE [Suspect]
     Active Substance: CYTARABINE
     Dosage: 2000 MILLIGRAM/SQ. METER
  14. CYTARABINE [Suspect]
     Active Substance: CYTARABINE
     Dosage: 200 MILLIGRAM/SQ. METER, QD
  15. CYTARABINE [Suspect]
     Active Substance: CYTARABINE
     Dosage: UNKNOWN DOSE
     Route: 037
  16. CYTARABINE [Suspect]
     Active Substance: CYTARABINE
     Dosage: 2000 MILLIGRAM/SQ. METER
     Route: 065
  17. CYTARABINE [Suspect]
     Active Substance: CYTARABINE
     Dosage: UNK
     Route: 037
  18. CYTARABINE [Suspect]
     Active Substance: CYTARABINE
     Dosage: 200 MILLIGRAM/SQ. METER, QD
     Route: 065
  19. CYTARABINE [Suspect]
     Active Substance: CYTARABINE
     Dosage: 200 MILLIGRAM/SQ. METER
     Route: 065
  20. CYTARABINE [Suspect]
     Active Substance: CYTARABINE
     Dosage: UNK
     Route: 037
  21. CYTARABINE [Suspect]
     Active Substance: CYTARABINE
     Dosage: 200 MILLIGRAM/SQ. METER, QD
     Route: 065
  22. CYTARABINE [Suspect]
     Active Substance: CYTARABINE
     Dosage: 2000 MILLIGRAM/SQ. METER, QD
     Route: 065
  23. CYTARABINE [Suspect]
     Active Substance: CYTARABINE
     Dosage: 200 MILLIGRAM/SQ. METER, QD
     Route: 065
  24. CYTARABINE [Suspect]
     Active Substance: CYTARABINE
     Dosage: 3 MILLIGRAM/SQ. METER, Q12H
     Route: 065
  25. CYTARABINE [Suspect]
     Active Substance: CYTARABINE
     Dosage: UNK
     Route: 037
  26. CYTARABINE [Suspect]
     Active Substance: CYTARABINE
     Dosage: UNK
     Route: 037
  27. CYTARABINE [Suspect]
     Active Substance: CYTARABINE
     Dosage: 200 MILLIGRAM/SQ. METER, QD
     Route: 065
  28. CYTARABINE [Suspect]
     Active Substance: CYTARABINE
     Dosage: 2000 MILLIGRAM/SQ. METER
     Route: 065
  29. GEMTUZUMAB OZOGAMICIN [Suspect]
     Active Substance: GEMTUZUMAB OZOGAMICIN
     Indication: Acute myeloid leukaemia refractory
     Dosage: 3 MILLIGRAM/SQ. METER, BID
  30. GEMTUZUMAB OZOGAMICIN [Suspect]
     Active Substance: GEMTUZUMAB OZOGAMICIN
     Dosage: 3 MILLIGRAM/SQ. METER, BID
  31. DEXAMETHASONE [Suspect]
     Active Substance: DEXAMETHASONE
     Indication: Acute myeloid leukaemia
     Dosage: UNKNOWN DOSE
     Route: 037
  32. DEXAMETHASONE [Suspect]
     Active Substance: DEXAMETHASONE
     Indication: Acute myeloid leukaemia
     Dosage: UNK
     Route: 037
  33. DEXAMETHASONE [Suspect]
     Active Substance: DEXAMETHASONE
     Dosage: UNK
     Route: 037
  34. METHOTREXATE [Suspect]
     Active Substance: METHOTREXATE
     Indication: Acute myeloid leukaemia
     Dosage: UNKNOWN DOSE
     Route: 037
  35. METHOTREXATE [Suspect]
     Active Substance: METHOTREXATE
     Dosage: UNK
     Route: 037
  36. RITUXIMAB [Suspect]
     Active Substance: RITUXIMAB
     Indication: Bone marrow conditioning regimen
     Dosage: UNKNOWN DOSE
  37. RITUXIMAB [Suspect]
     Active Substance: RITUXIMAB
     Dosage: UNKNOWN DOSE
  38. RITUXAN [Suspect]
     Active Substance: RITUXIMAB
     Indication: Drug therapy
     Dosage: UNK
     Route: 065
  39. RITUXAN [Suspect]
     Active Substance: RITUXIMAB
     Indication: Alloimmunisation
     Dosage: UNK
     Route: 065
  40. RITUXAN [Suspect]
     Active Substance: RITUXIMAB
     Indication: Bone marrow conditioning regimen
  41. HYDROCORTISONE [Suspect]
     Active Substance: HYDROCORTISONE
     Indication: Acute myeloid leukaemia
     Dosage: UNKNOWN DOSE
     Route: 037
  42. HYDROCORTISONE [Suspect]
     Active Substance: HYDROCORTISONE
     Dosage: UNK
     Route: 037
  43. MITOXANTRONE [Suspect]
     Active Substance: MITOXANTRONE HYDROCHLORIDE
     Indication: Acute myeloid leukaemia
     Dosage: 12 MILLIGRAM/SQ. METER
     Route: 065
  44. MITOXANTRONE [Suspect]
     Active Substance: MITOXANTRONE HYDROCHLORIDE
     Dosage: 12 MILLIGRAM/SQ. METER
     Route: 065
  45. FLUDARABINE [Suspect]
     Active Substance: FLUDARABINE PHOSPHATE
     Indication: Acute myeloid leukaemia refractory
     Dosage: 30 MILLIGRAM/SQ. METER
     Route: 065
  46. FLUDARABINE [Suspect]
     Active Substance: FLUDARABINE PHOSPHATE
     Indication: Drug therapy
     Dosage: 30 MILLIGRAM/SQ. METER
     Route: 065
  47. FLUDARABINE [Suspect]
     Active Substance: FLUDARABINE PHOSPHATE
     Dosage: 30 MILLIGRAM/SQ. METER
     Route: 065
  48. FLUDARABINE [Suspect]
     Active Substance: FLUDARABINE PHOSPHATE
     Dosage: 30 MILLIGRAM/SQ. METER
     Route: 065
  49. CYCLOPHOSPHAMIDE [Suspect]
     Active Substance: CYCLOPHOSPHAMIDE
     Indication: Bone marrow conditioning regimen
     Dosage: UNK
  50. CYCLOPHOSPHAMIDE [Suspect]
     Active Substance: CYCLOPHOSPHAMIDE
     Indication: Drug therapy
     Route: 065
  51. URSODIOL [Concomitant]
     Active Substance: URSODIOL
     Indication: Prophylaxis
     Dosage: UNK
  52. URSODIOL [Concomitant]
     Active Substance: URSODIOL
     Indication: Stem cell transplant
     Dosage: 250 MG/DOSE, 2/DAY
     Route: 048
     Dates: start: 20141110
  53. URSODIOL [Concomitant]
     Active Substance: URSODIOL
     Indication: Venoocclusive liver disease
     Route: 065
  54. URSODIOL [Concomitant]
     Active Substance: URSODIOL
     Indication: Prophylaxis
  55. ONDANSETRON [Concomitant]
     Active Substance: ONDANSETRON
     Indication: Stem cell transplant
     Dosage: 8 MG/DOSE, 2/J
     Route: 042
     Dates: start: 20141110
  56. ONDANSETRON [Concomitant]
     Active Substance: ONDANSETRON
     Indication: Stem cell transplant
     Dosage: 8 MILLIGRAM, BID
     Route: 042
     Dates: start: 20141110
  57. VALACYCLOVIR HYDROCHLORIDE [Concomitant]
     Active Substance: VALACYCLOVIR HYDROCHLORIDE
     Indication: Stem cell transplant
     Dosage: 500MG/DOSE, 2/J
     Route: 048
     Dates: start: 20141110
  58. VALACYCLOVIR HYDROCHLORIDE [Concomitant]
     Active Substance: VALACYCLOVIR HYDROCHLORIDE
     Indication: Stem cell transplant
     Dosage: 500 MILLIGRAM, BID
     Route: 048
     Dates: start: 20141110
  59. URSODIOL [Concomitant]
     Active Substance: URSODIOL
     Indication: Stem cell transplant
     Dosage: 250 MG/DOSE, 2/J
     Route: 048
     Dates: start: 20141110
  60. URSODIOL [Concomitant]
     Active Substance: URSODIOL
     Indication: Prophylaxis
     Dosage: 250 MILLIGRAM, BID
     Route: 048
     Dates: start: 20141110
  61. URSODIOL [Concomitant]
     Active Substance: URSODIOL
     Indication: Stem cell transplant
  62. URSODIOL [Concomitant]
     Active Substance: URSODIOL
     Indication: Venoocclusive liver disease
  63. CANCIDAS [Concomitant]
     Active Substance: CASPOFUNGIN ACETATE
     Indication: Stem cell transplant
     Dosage: 70 MG/J, 1/J
     Route: 042
     Dates: start: 20141125
  64. CANCIDAS [Concomitant]
     Active Substance: CASPOFUNGIN ACETATE
     Indication: Stem cell transplant
     Dosage: 70 MILLIGRAM, QD
     Route: 042
     Dates: start: 20141125
  65. FLUCONAZOLE [Concomitant]
     Active Substance: FLUCONAZOLE
     Indication: Stem cell transplant
     Dosage: 400MGJ, 1/J
     Route: 042
     Dates: start: 20141125
  66. FLUCONAZOLE [Concomitant]
     Active Substance: FLUCONAZOLE
     Indication: Stem cell transplant
     Dosage: 400 MILLIGRAM, QD
     Route: 042
     Dates: start: 20141125
  67. METHYLPREDNISOLONE [Concomitant]
     Active Substance: METHYLPREDNISOLONE
     Indication: Stem cell transplant
     Dosage: 30 MG/12H, 2/J
     Route: 042
     Dates: start: 20141128
  68. METHYLPREDNISOLONE [Concomitant]
     Active Substance: METHYLPREDNISOLONE
     Indication: Stem cell transplant
     Dosage: 30 MILLIGRAM, Q12H
     Route: 042
     Dates: start: 20141128
  69. PANTOPRAZOLE [Concomitant]
     Active Substance: PANTOPRAZOLE
     Indication: Stem cell transplant
     Dosage: 40 MG/J, 1/J
     Route: 042
     Dates: start: 20141110
  70. PANTOPRAZOLE [Concomitant]
     Active Substance: PANTOPRAZOLE
     Indication: Stem cell transplant
     Dosage: 40 MILLIGRAM, QD
     Route: 042
  71. CYCLOSPORINE [Concomitant]
     Active Substance: CYCLOSPORINE
     Indication: Stem cell transplant
     Dosage: 60 MG/12H, 2/J
     Route: 042
     Dates: start: 20141110
  72. CYCLOSPORINE [Concomitant]
     Active Substance: CYCLOSPORINE
     Indication: Stem cell transplant
     Dosage: 60 MILLIGRAM, Q12H
     Route: 042
     Dates: start: 20141110
  73. CELLCEPT [Concomitant]
     Active Substance: MYCOPHENOLATE MOFETIL
     Indication: Stem cell transplant
     Dosage: 1250 MG/12H, 2/J
     Route: 042
     Dates: start: 20141110
  74. CELLCEPT [Concomitant]
     Active Substance: MYCOPHENOLATE MOFETIL
     Indication: Stem cell transplant
     Dosage: 1250 MILLIGRAM, Q12H
     Route: 042
     Dates: start: 20141110
  75. CLOFARABIN ALVOGEN [Concomitant]
     Indication: Acute myeloid leukaemia
     Dosage: 40 MILLIGRAM/SQ. METER, QD
     Route: 065
  76. CLOFARABIN ALVOGEN [Concomitant]
     Dosage: UNK
     Route: 065
  77. DAUNORUBICIN HYDROCHLORIDE [Concomitant]
     Active Substance: DAUNORUBICIN HYDROCHLORIDE
     Indication: Acute myeloid leukaemia
     Dosage: 60 MILLIGRAM/SQ. METER, QD
     Route: 065
  78. FLUDARABINE PHOSPHATE [Concomitant]
     Active Substance: FLUDARABINE PHOSPHATE
     Indication: Acute myeloid leukaemia
     Dosage: 30 MILLIGRAM/SQ. METER, QD
     Route: 065
  79. FLUDARABINE PHOSPHATE [Concomitant]
     Active Substance: FLUDARABINE PHOSPHATE
     Dosage: 30 MILLIGRAM/SQ. METER, QD
     Route: 065

REACTIONS (10)
  - Thrombocytopenia [Unknown]
  - Myalgia [Unknown]
  - Febrile neutropenia [Unknown]
  - Venoocclusive liver disease [Unknown]
  - Drug resistance [Unknown]
  - Hypersensitivity [Recovered/Resolved]
  - Granulicatella infection [Unknown]
  - Sepsis [Unknown]
  - Cerebral haemorrhage [Recovered/Resolved]
  - Off label use [Unknown]

NARRATIVE: CASE EVENT DATE: 20141101
